FAERS Safety Report 4754212-8 (Version None)
Quarter: 2005Q3

REPORT INFORMATION
  Report Type: 
  Country: None (occurrence: None)
  Receive Date: 20050827
  Receipt Date: 20000517
  Transmission Date: 20060218
  Serious: Yes (Life-Threatening, Hospitalization, Other)
  Sender: FDA-Public Use
  Company Number: 00J--10293

PATIENT
  Age: 4 Year
  Sex: Female

DRUGS (1)
  1. TEGRETOL [Suspect]
     Indication: COMPLEX PARTIAL SEIZURES
     Dosage: 250 MG/DAY
     Route: 048
     Dates: start: 20000311, end: 20000326

REACTIONS (9)
  - AGRANULOCYTOSIS [None]
  - C-REACTIVE PROTEIN INCREASED [None]
  - HEPATIC FUNCTION ABNORMAL [None]
  - HYPOGAMMAGLOBULINAEMIA [None]
  - LYMPHOCYTE STIMULATION TEST POSITIVE [None]
  - NEUTROPHIL COUNT DECREASED [None]
  - PYREXIA [None]
  - RASH [None]
  - SKIN TEST POSITIVE [None]
